FAERS Safety Report 6099349-9 (Version None)
Quarter: 2009Q1

REPORT INFORMATION
  Report Type: 
  Country: None (occurrence: None)
  Receive Date: 20090226
  Receipt Date: 20090226
  Transmission Date: 20090719
  Serious: Yes (Hospitalization)
  Sender: FDA-Public Use
  Company Number: None

PATIENT
  Age: 86 Year
  Sex: Male
  Weight: 90.54 kg

DRUGS (2)
  1. TERAZOSIN HCL [Suspect]
     Indication: BENIGN PROSTATIC HYPERPLASIA
     Dosage: 6 MG EVERY DAY PO
     Route: 048
     Dates: start: 20090212, end: 20090213
  2. TERAZOSIN HCL [Suspect]
     Dosage: 4 MG EVERY DAY PO
     Route: 048
     Dates: start: 20090211, end: 20090212

REACTIONS (3)
  - BLOOD PRESSURE INCREASED [None]
  - DIZZINESS [None]
  - HYPOTENSION [None]
